FAERS Safety Report 8520718-9 (Version None)
Quarter: 2012Q3

REPORT INFORMATION
  Report Type: 
  Country: None (occurrence: None)
  Receive Date: 20120719
  Receipt Date: 20120608
  Transmission Date: 20120928
  Serious: Yes (Hospitalization, Other)
  Sender: FDA-Public Use
  Company Number: US-BRISTOL-MYERS SQUIBB COMPANY-16389868

PATIENT
  Age: 63 Year
  Sex: Male

DRUGS (15)
  1. VALCYTE [Concomitant]
  2. VITAMIN D [Concomitant]
     Dosage: 800 UNITS
  3. BELATACEPT [Suspect]
     Indication: RENAL TRANSPLANT
     Dosage: 8DEC11-10MG/KG
     Route: 042
     Dates: start: 20111208, end: 20120103
  4. ALLOPURINOL [Concomitant]
  5. BACTRIM [Concomitant]
     Dosage: BACTRIM SS 1 TAB
  6. PEPCID [Concomitant]
  7. K-PHOS NEUTRAL [Concomitant]
  8. NIACIN [Concomitant]
  9. COREG [Concomitant]
  10. FISH OIL [Concomitant]
  11. MULTI-VITAMIN [Concomitant]
  12. SIMULECT [Concomitant]
     Route: 042
     Dates: start: 20111208, end: 20111211
  13. PREDNISOLONE [Concomitant]
     Route: 048
     Dates: start: 20111208, end: 20120117
  14. METHYLPREDNISOLONE [Concomitant]
     Dosage: 500MG-8DEC11 250MG POD1 125MG POD2 PULSE 800MG IV Q DAYX3 2JAN-4JAN12
     Route: 042
  15. MYCOPHENOLATE MOFETIL [Concomitant]
     Dates: start: 20111208, end: 20120112

REACTIONS (3)
  - PYREXIA [None]
  - TRANSPLANT REJECTION [None]
  - GRAFT LOSS [None]
